FAERS Safety Report 8262755-8 (Version None)
Quarter: 2012Q2

REPORT INFORMATION
  Report Type: 
  Country: None (occurrence: None)
  Receive Date: 20120405
  Receipt Date: 20120329
  Transmission Date: 20120825
  Serious: No
  Sender: FDA-Public Use
  Company Number: US-BAYER-2012-033115

PATIENT

DRUGS (3)
  1. TYLENOL (CAPLET) [Concomitant]
  2. IBUPROFEN (ADVIL) [Concomitant]
  3. ALEVE (CAPLET) [Suspect]
     Route: 048

REACTIONS (1)
  - NO ADVERSE EVENT [None]
